FAERS Safety Report 5062081-4 (Version None)
Quarter: 2006Q3

REPORT INFORMATION
  Report Type: 
  Country: None (occurrence: None)
  Receive Date: 20060703
  Receipt Date: 20051004
  Transmission Date: 20061208
  Serious: No
  Sender: FDA-Public Use
  Company Number: 2005S1009892

PATIENT
  Age: 31 Year
  Sex: Female

DRUGS (5)
  1. CLOZAPINE [Suspect]
     Indication: SCHIZOPHRENIA
     Dosage: SEE IMAGE
     Route: 048
     Dates: end: 20050928
  2. PROPRANOLOL HYDROCHLORIDE [Concomitant]
  3. PHENYTOIN SODIUM [Concomitant]
  4. CLONIDINE [Concomitant]
  5. FLUOXETINE HYDROCHLORIDE [Concomitant]

REACTIONS (1)
  - GRANULOCYTOPENIA [None]
